FAERS Safety Report 18317961 (Version 1)
Quarter: 2020Q3

REPORT INFORMATION
  Report Type: Spontaneous
  Country: FR (occurrence: FR)
  Receive Date: 20200928
  Receipt Date: 20200928
  Transmission Date: 20201103
  Serious: Yes (Hospitalization)
  Sender: FDA-Public Use
  Company Number: FR-TEVA-2020-FR-1831389

PATIENT
  Age: 35 Year
  Sex: Male
  Weight: 90 kg

DRUGS (6)
  1. LEPTICUR 10 MG, COMPRIME [Suspect]
     Active Substance: TROPATEPINE HYDROCHLORIDE
     Indication: PARKINSONISM
     Dosage: UNIT DOSE : 10 MILLIGRAM
     Route: 048
  2. SULFARLEM S 25 MG, COMPRIME ENROBE [Suspect]
     Active Substance: ANETHOLTRITHION
     Indication: APTYALISM
     Dosage: UNIT DOSE : 50 MILLIGRAM
     Route: 048
  3. DIAZEPAM. [Suspect]
     Active Substance: DIAZEPAM
     Indication: ANXIETY
     Dosage: UNIT DOSE : 30 MILLIGRAM
     Route: 048
  4. LORMETAZEPAM [Suspect]
     Active Substance: LORMETAZEPAM
     Indication: INSOMNIA
     Dosage: UNIT DOSE : 1 MILLIGRAM
     Route: 048
  5. TERCIAN [Suspect]
     Active Substance: CYAMEMAZINE
     Indication: SCHIZOPHRENIA
     Dosage: UNIT DOSE : 125 MILLIGRAM
     Route: 048
  6. ABILIFY [Suspect]
     Active Substance: ARIPIPRAZOLE
     Indication: SCHIZOPHRENIA
     Dosage: UNIT DOSE  : 400 MILLIGRAM
     Route: 030
     Dates: end: 202005

REACTIONS (2)
  - Phlebitis [Recovered/Resolved]
  - Pulmonary embolism [Recovered/Resolved]

NARRATIVE: CASE EVENT DATE: 20200506
